FAERS Safety Report 7150809-9 (Version None)
Quarter: 2010Q4

REPORT INFORMATION
  Report Type: 
  Country: None (occurrence: None)
  Receive Date: 20101207
  Receipt Date: 20101207
  Transmission Date: 20110411
  Serious: Yes (Life-Threatening, Hospitalization)
  Sender: FDA-Public Use
  Company Number: None

PATIENT
  Age: 84 Year
  Sex: Male
  Weight: 71 kg

DRUGS (1)
  1. VANCOMYCIN [Suspect]
     Dosage: 750 MG BID IV
     Route: 042
     Dates: start: 20100311, end: 20100402

REACTIONS (4)
  - NEPHRITIS [None]
  - PRURITUS [None]
  - RASH [None]
  - URTICARIA [None]
